FAERS Safety Report 4376680-6 (Version None)
Quarter: 2004Q2

REPORT INFORMATION
  Report Type: 
  Country: None (occurrence: None)
  Receive Date: 20040608
  Receipt Date: 20040524
  Transmission Date: 20050107
  Serious: Yes (Hospitalization)
  Sender: FDA-Public Use
  Company Number: 701606

PATIENT
  Age: 68 Year
  Sex: Male

DRUGS (14)
  1. AMEVIVE [Suspect]
     Indication: PSORIASIS
     Dosage: 15 MG QW IM
     Route: 030
     Dates: start: 20040109, end: 20040130
  2. AMEVIVE [Suspect]
     Indication: PSORIASIS
     Dosage: 15 MG QW IM
     Route: 030
     Dates: start: 20040213, end: 20040315
  3. GLUCOTROL [Concomitant]
  4. GLUCOPHAGE ^UNS^ [Concomitant]
  5. LANTUS [Concomitant]
  6. LISINOPRIL [Concomitant]
  7. ALBUTEROL [Concomitant]
  8. SINGULAIR [Concomitant]
  9. NEXIUM [Concomitant]
  10. ZOLOFT [Concomitant]
  11. OSCAL 500-D [Concomitant]
  12. MYCELEX [Concomitant]
  13. COLACE [Concomitant]
  14. CLARITIN [Concomitant]

REACTIONS (7)
  - DERMATITIS EXFOLIATIVE [None]
  - DIARRHOEA [None]
  - ECTROPION [None]
  - FEELING ABNORMAL [None]
  - PAIN [None]
  - PSORIASIS [None]
  - PYREXIA [None]
